FAERS Safety Report 7808348-5 (Version None)
Quarter: 2011Q4

REPORT INFORMATION
  Report Type: 
  Country: None (occurrence: None)
  Receive Date: 20111012
  Receipt Date: 20111004
  Transmission Date: 20120403
  Serious: Yes (Hospitalization)
  Sender: FDA-Public Use
  Company Number: US-ELI_LILLY_AND_COMPANY-US201110000964

PATIENT
  Sex: Male

DRUGS (2)
  1. BYETTA [Suspect]
     Dosage: 10 UG, UNK
  2. BYETTA [Suspect]
     Indication: DIABETES MELLITUS
     Dosage: 5 UG, UNK
     Route: 058

REACTIONS (2)
  - GLYCOSYLATED HAEMOGLOBIN INCREASED [None]
  - PANCREATITIS [None]
